FAERS Safety Report 18516703 (Version 2)
Quarter: 2020Q4

REPORT INFORMATION
  Report Type: Report from Study
  Country: US (occurrence: US)
  Receive Date: 20201118
  Receipt Date: 20201212
  Transmission Date: 20210114
  Serious: Yes (Hospitalization)
  Sender: FDA-Public Use
  Company Number: US-ROCHE-2711447

PATIENT
  Age: 90 Year
  Sex: Female
  Weight: 37.55 kg

DRUGS (13)
  1. MELATONIN [Concomitant]
     Active Substance: MELATONIN
  2. TAMSULOSIN HYDROCHLORIDE. [Concomitant]
     Active Substance: TAMSULOSIN HYDROCHLORIDE
  3. DEXAMETHASONE. [Concomitant]
     Active Substance: DEXAMETHASONE
  4. ATEZOLIZUMAB. [Suspect]
     Active Substance: ATEZOLIZUMAB
     Indication: NON-SMALL CELL LUNG CANCER
     Dosage: DATE OF MOST RECENT DOSE ADMINISTERED OF ATEZOLIZUMAB PRIOR TO SAE ONSET: 30/OCT/2020
     Route: 041
     Dates: start: 20200816, end: 20201031
  5. ATENOLOL. [Concomitant]
     Active Substance: ATENOLOL
  6. XL184 [Suspect]
     Active Substance: CABOZANTINIB
     Indication: NON-SMALL CELL LUNG CANCER
     Dosage: DATE OF MOST RECENT DOSE (20 MG) ADMINISTERED OF CARBOZANTINIB PRIOR TO SAE ONSET: 29/OCT/2020
     Route: 048
     Dates: start: 20200816
  7. APIXABAN [Concomitant]
     Active Substance: APIXABAN
  8. OXYCODONE HYDROCHLORIDE. [Concomitant]
     Active Substance: OXYCODONE HYDROCHLORIDE
  9. BISACODYL. [Concomitant]
     Active Substance: BISACODYL
  10. PANTOPRAZOLE SODIUM. [Concomitant]
     Active Substance: PANTOPRAZOLE SODIUM
  11. ACETAMINOPHEN. [Concomitant]
     Active Substance: ACETAMINOPHEN
  12. ELIQUIS [Concomitant]
     Active Substance: APIXABAN
  13. CYCLOBENZAPRINE HYDROCHLORIDE. [Concomitant]
     Active Substance: CYCLOBENZAPRINE HYDROCHLORIDE

REACTIONS (1)
  - Spinal cord compression [Recovering/Resolving]

NARRATIVE: CASE EVENT DATE: 20201030
